FAERS Safety Report 9862353 (Version 1)
Quarter: 2014Q1

REPORT INFORMATION
  Report Type: Spontaneous
  Country: JP (occurrence: JP)
  Receive Date: 20140203
  Receipt Date: 20140203
  Transmission Date: 20141002
  Serious: Yes (Other)
  Sender: FDA-Public Use
  Company Number: JP-MYLANLABS-2014S1001755

PATIENT
  Age: 53 Year
  Sex: Female

DRUGS (6)
  1. PREDNISOLONE [Suspect]
     Indication: IMMUNOSUPPRESSANT DRUG THERAPY
     Route: 048
  2. MYCOPHENOLATE [Concomitant]
     Indication: IMMUNOSUPPRESSANT DRUG THERAPY
     Route: 048
  3. VALIXA [Concomitant]
     Indication: INFECTION PROPHYLAXIS
     Route: 048
  4. SULFAMETHOXAZOLE + TRIMETHOPRIM [Concomitant]
     Indication: INFECTION PROPHYLAXIS
  5. ITRACONAZOLE [Concomitant]
     Indication: INFECTION PROPHYLAXIS
  6. TACROLIMUS [Concomitant]
     Indication: IMMUNOSUPPRESSANT DRUG THERAPY

REACTIONS (3)
  - Diabetes mellitus [Unknown]
  - Aspergillus test positive [Unknown]
  - Fungal test positive [Unknown]
